FAERS Safety Report 13621646 (Version 2)
Quarter: 2017Q2

REPORT INFORMATION
  Report Type: Spontaneous
  Country: JP (occurrence: JP)
  Receive Date: 20170607
  Receipt Date: 20170614
  Transmission Date: 20170830
  Serious: Yes (Hospitalization, Other)
  Sender: FDA-Public Use
  Company Number: JP-009507513-1705JPN002992J

PATIENT
  Age: 68 Year
  Sex: Male

DRUGS (5)
  1. ISOTONIC SODIUM CHLORIDE SOLUTION KIT H [Concomitant]
     Dosage: UNK
     Route: 041
     Dates: start: 20161004, end: 20161016
  2. CUBICIN [Suspect]
     Active Substance: DAPTOMYCIN
     Indication: STAPHYLOCOCCAL INFECTION
     Dosage: UNK UNK, QD
     Route: 041
     Dates: start: 201609, end: 20160926
  3. CUBICIN [Suspect]
     Active Substance: DAPTOMYCIN
     Dosage: 350 MG, QD
     Route: 041
     Dates: start: 20161014, end: 20161016
  4. ISOTONIC SODIUM CHLORIDE SOLUTION KIT H [Concomitant]
     Dosage: UNK
     Route: 041
     Dates: start: 201609, end: 20160926
  5. RIFADIN [Concomitant]
     Active Substance: RIFAMPIN
     Dosage: UNK
     Route: 048
     Dates: start: 20160920, end: 20161016

REACTIONS (2)
  - Vasculitis [Recovered/Resolved]
  - Nephritis [Not Recovered/Not Resolved]

NARRATIVE: CASE EVENT DATE: 20161016
